FAERS Safety Report 7406132-8 (Version None)
Quarter: 2011Q2

REPORT INFORMATION
  Report Type: 
  Country: None (occurrence: None)
  Receive Date: 20110411
  Receipt Date: 20110321
  Transmission Date: 20111010
  Serious: No
  Sender: FDA-Public Use
  Company Number: US-AMGEN-USASP2011015206

PATIENT
  Age: 61 Year

DRUGS (1)
  1. VECTIBIX [Suspect]
     Indication: COLORECTAL CANCER
     Dosage: UNK UNK, Q2WK
     Dates: start: 20101201

REACTIONS (6)
  - DIARRHOEA [None]
  - MAGNESIUM DEFICIENCY [None]
  - PRURITUS GENERALISED [None]
  - SKIN IRRITATION [None]
  - SKIN FISSURES [None]
  - ERYTHEMA [None]
